FAERS Safety Report 5220681-2 (Version None)
Quarter: 2007Q1

REPORT INFORMATION
  Report Type: 
  Country: None (occurrence: None)
  Receive Date: 20070126
  Receipt Date: 20070123
  Transmission Date: 20070707
  Serious: Yes (Death, Hospitalization)
  Sender: FDA-Public Use
  Company Number: PHMT2007CA00566

PATIENT
  Sex: Female

DRUGS (9)
  1. QUETIAPINE FUMARATE [Concomitant]
     Dosage: 25 MG, BID
  2. OLANZAPINE [Concomitant]
     Dosage: 15 MG, QHS
  3. RISPERIDONE [Concomitant]
     Dosage: 6 MG QHS
  4. VALPROIC ACID [Concomitant]
     Dosage: 1250 MG DAILY
  5. GABAPENTIN [Concomitant]
     Dosage: 300 MG, BID
  6. OVRAL [Concomitant]
     Dosage: FOR 3 MONTHS
  7. ATORVASTATIN CALCIUM [Concomitant]
     Dosage: 10 MG, UNK
  8. NAPROXEN [Concomitant]
     Dosage: 500 MG, BID PRN
  9. CLOZARIL [Suspect]
     Indication: SCHIZOAFFECTIVE DISORDER
     Dosage: 300 MG QHS
     Route: 048
     Dates: start: 20010101, end: 20050101

REACTIONS (5)
  - ANGIOPATHY [None]
  - COUGH [None]
  - DEATH [None]
  - PULMONARY OEDEMA [None]
  - WHITE BLOOD CELL COUNT INCREASED [None]
